FAERS Safety Report 6669039-X (Version None)
Quarter: 2010Q2

REPORT INFORMATION
  Report Type: 
  Country: None (occurrence: None)
  Receive Date: 20100402
  Receipt Date: 20100330
  Transmission Date: 20101027
  Serious: Yes (Hospitalization)
  Sender: FDA-Public Use
  Company Number: ALL1-2010-00948

PATIENT
  Age: 73 Year
  Sex: Male

DRUGS (1)
  1. FOSRENOL [Suspect]
     Indication: HYPERPHOSPHATAEMIA
     Dosage: 1000 MG, WITH MEALS HALF WITH SNACKS BID, ORAL
     Route: 048
     Dates: start: 20091116

REACTIONS (1)
  - CELLULITIS [None]
